FAERS Safety Report 5800490-3 (Version None)
Quarter: 2008Q3

REPORT INFORMATION
  Report Type: 
  Country: None (occurrence: None)
  Receive Date: 20080703
  Receipt Date: 20080627
  Transmission Date: 20090109
  Serious: Yes (Other)
  Sender: FDA-Public Use
  Company Number: A0735913A

PATIENT
  Age: 30 Year
  Sex: Female

DRUGS (5)
  1. COMBIVIR [Suspect]
     Indication: ANTIRETROVIRAL THERAPY
     Dosage: 3TAB PER DAY
     Route: 048
  2. GLUCOPHAGE [Suspect]
     Indication: DRUG USE FOR UNKNOWN INDICATION
  3. VIRACEPT [Concomitant]
     Indication: ANTIRETROVIRAL THERAPY
     Dosage: 2500MG PER DAY
     Route: 048
     Dates: end: 20080301
  4. INVIRASE [Concomitant]
     Indication: ANTIRETROVIRAL THERAPY
     Dosage: 2000MG PER DAY
     Route: 048
     Dates: start: 20080301
  5. FORTOVASE [Concomitant]
     Indication: ANTIRETROVIRAL THERAPY
     Dosage: 200MG PER DAY
     Route: 048
     Dates: start: 20080301

REACTIONS (2)
  - ABORTION SPONTANEOUS [None]
  - DRUG EXPOSURE DURING PREGNANCY [None]
